FAERS Safety Report 9664648 (Version 1)
Quarter: 2013Q4

REPORT INFORMATION
  Report Type: Spontaneous
  Country: SZ (occurrence: None)
  Receive Date: 20131031
  Receipt Date: 20131031
  Transmission Date: 20140711
  Serious: Yes (Other)
  Sender: FDA-Public Use
  Company Number: FK201304716

PATIENT
  Age: 14 Year
  Sex: Female
  Weight: 29 kg

DRUGS (1)
  1. AMIODARONE HCL (MANUFACTURER UNKNOWN)(AMIODARONE HYDROCHLORIDE)(AMIODARONE HYDROCHLORIDE) [Suspect]
     Indication: ATRIAL FIBRILLATION

REACTIONS (2)
  - Polyneuropathy [None]
  - Rhabdomyolysis [None]
